FAERS Safety Report 4505894-7 (Version None)
Quarter: 2004Q4

REPORT INFORMATION
  Report Type: 
  Country: None (occurrence: None)
  Receive Date: 20041025
  Receipt Date: 20040324
  Transmission Date: 20050328
  Serious: Yes (Other)
  Sender: FDA-Public Use
  Company Number: US-JNJFOC-20040300768

PATIENT
  Age: 51 Year
  Sex: Female
  Weight: 133.3575 kg

DRUGS (19)
  1. REMICADE [Suspect]
     Indication: RHEUMATOID ARTHRITIS
     Dosage: 10MG/KG INTRAVENOUS
     Route: 042
     Dates: start: 20040120, end: 20040120
  2. METHOTREXATE [Suspect]
     Indication: RHEUMATOID ARTHRITIS
     Dosage: 7.5 MG 1 IN 7 WEEK
     Dates: start: 20020101
  3. MULTIVITAMIN [Concomitant]
  4. NOVOLIN 85/15 [Concomitant]
  5. HUMALOG [Concomitant]
  6. GUANFACINE HCL [Concomitant]
  7. METFORMIN HCL [Concomitant]
  8. GLYBURIDE [Concomitant]
  9. RPEMARIN (ESTROGENS CONJUGATED) [Concomitant]
  10. FOLIC ACID [Concomitant]
  11. TRICOR [Concomitant]
  12. ALLOPURINOL [Concomitant]
  13. CELEBREX [Concomitant]
  14. LIPITOR [Concomitant]
  15. MAVIK [Concomitant]
  16. STOOL SOFTENER (DOCUSATE SODIUM) [Concomitant]
  17. ACETAMINOPHEN [Concomitant]
  18. ASPIRIN [Concomitant]
  19. VITAMIN E [Concomitant]

REACTIONS (8)
  - ANAEMIA [None]
  - CHEST PAIN [None]
  - CHILLS [None]
  - CONSTIPATION [None]
  - DYSPHAGIA [None]
  - HEADACHE [None]
  - HOT FLUSH [None]
  - LYMPHOMA [None]
